FAERS Safety Report 25186036 (Version 1)
Quarter: 2025Q2

REPORT INFORMATION
  Report Type: Spontaneous
  Country: US (occurrence: None)
  Receive Date: 20250410
  Receipt Date: 20250410
  Transmission Date: 20250717
  Serious: Yes (Other)
  Sender: INCYTE
  Company Number: US-INCYTE CORPORATION-2025IN003703

PATIENT
  Age: 63 Year

DRUGS (1)
  1. JAKAFI [Suspect]
     Active Substance: RUXOLITINIB
     Indication: Product used for unknown indication
     Dosage: 10 MILLIGRAM, BID

REACTIONS (10)
  - Arthropathy [Unknown]
  - Foot fracture [Unknown]
  - Pain [Unknown]
  - Dyspepsia [Unknown]
  - Decreased appetite [Unknown]
  - Prostatomegaly [Unknown]
  - Infection [Unknown]
  - Fatigue [Unknown]
  - Muscle spasms [Unknown]
  - Nausea [Unknown]
